FAERS Safety Report 21940101 (Version 1)
Quarter: 2023Q1

REPORT INFORMATION
  Report Type: Report from Study
  Country: US (occurrence: US)
  Receive Date: 20230201
  Receipt Date: 20230201
  Transmission Date: 20230418
  Serious: No
  Sender: FDA-Public Use
  Company Number: US-EXELIXIS-CABO-22049563

PATIENT
  Age: 69 Year
  Sex: Male

DRUGS (2)
  1. CABOMETYX [Suspect]
     Active Substance: CABOZANTINIB S-MALATE
     Indication: Renal cancer
     Dosage: 40 MG, QD
     Route: 048
     Dates: start: 20211118
  2. CABOMETYX [Suspect]
     Active Substance: CABOZANTINIB S-MALATE
     Dosage: 40 MG DAILY FOR 5 OUT OF 7 DAYS EACH WEEK
     Route: 048
     Dates: start: 202208

REACTIONS (8)
  - Gastrointestinal motility disorder [Unknown]
  - Parosmia [Unknown]
  - Nausea [Unknown]
  - Decreased appetite [Unknown]
  - Metastases to spine [Unknown]
  - Weight decreased [Recovering/Resolving]
  - Asymptomatic COVID-19 [Unknown]
  - Inappropriate schedule of product administration [Unknown]

NARRATIVE: CASE EVENT DATE: 20220515
